FAERS Safety Report 24909929 (Version 1)
Quarter: 2025Q1

REPORT INFORMATION
  Report Type: Spontaneous
  Country: US (occurrence: US)
  Receive Date: 20250131
  Receipt Date: 20250131
  Transmission Date: 20250408
  Serious: Yes (Other)
  Sender: Unknown Manufacturer
  Company Number: US-KOANAAP-SML-US-2025-00064

PATIENT
  Age: 11 Year
  Sex: Male

DRUGS (4)
  1. DOCETAXEL [Suspect]
     Active Substance: DOCETAXEL
     Indication: Osteosarcoma metastatic
  2. DOCETAXEL [Suspect]
     Active Substance: DOCETAXEL
     Indication: Metastases to lung
  3. GEMCITABINE [Suspect]
     Active Substance: GEMCITABINE
     Indication: Osteosarcoma metastatic
  4. GEMCITABINE [Suspect]
     Active Substance: GEMCITABINE
     Indication: Metastases to lung

REACTIONS (2)
  - Disease progression [Unknown]
  - Drug ineffective [Unknown]
